FAERS Safety Report 5941245-9 (Version None)
Quarter: 2008Q4

REPORT INFORMATION
  Report Type: 
  Country: None (occurrence: None)
  Receive Date: 20081104
  Receipt Date: 20081104
  Transmission Date: 20090506
  Serious: No
  Sender: FDA-Public Use
  Company Number: None

PATIENT
  Age: 78 Year
  Sex: Male

DRUGS (4)
  1. AZASITE [Suspect]
     Indication: EYE INFECTION
     Dosage: 1 DROP EACH EYE BEDTIME EYES
     Dates: start: 20081101
  2. AZASITE [Suspect]
     Indication: INFECTION PROPHYLAXIS
     Dosage: 1 DROP EACH EYE BEDTIME EYES
     Dates: start: 20081101
  3. AZASITE [Suspect]
     Indication: EYE INFECTION
     Dosage: 1 DROP EACH EYE BEDTIME EYES
     Dates: start: 20081102
  4. AZASITE [Suspect]
     Indication: INFECTION PROPHYLAXIS
     Dosage: 1 DROP EACH EYE BEDTIME EYES
     Dates: start: 20081102

REACTIONS (2)
  - BURNING SENSATION [None]
  - PAIN [None]
